FAERS Safety Report 21186821 (Version 1)
Quarter: 2022Q3

REPORT INFORMATION
  Report Type: Spontaneous
  Country: US (occurrence: None)
  Receive Date: 20220808
  Receipt Date: 20220808
  Transmission Date: 20221026
  Serious: Yes (Hospitalization)
  Sender: FDA-Public Use
  Company Number: None

PATIENT
  Age: 81 Year
  Sex: Female

DRUGS (1)
  1. FORTEO [Suspect]
     Active Substance: TERIPARATIDE
     Dosage: FREQUENCY : DAILY;?
     Route: 058
     Dates: start: 202206

REACTIONS (3)
  - Atrial fibrillation [None]
  - Vertigo [None]
  - Product dose omission issue [None]

NARRATIVE: CASE EVENT DATE: 20220801
